FAERS Safety Report 11231223 (Version 2)
Quarter: 2015Q3

REPORT INFORMATION
  Report Type: Other
  Country: RO (occurrence: RO)
  Receive Date: 20150701
  Receipt Date: 20150707
  Transmission Date: 20151125
  Serious: Yes (Hospitalization, Other)
  Sender: FDA-Public Use
  Company Number: RO-SHIRE-RO201506578

PATIENT
  Age: 5 Year
  Sex: Male

DRUGS (1)
  1. ELAPRASE [Suspect]
     Active Substance: IDURSULFASE
     Indication: MUCOPOLYSACCHARIDOSIS II
     Dosage: 0.5 MG/KG, 1X/WEEK
     Route: 041

REACTIONS (8)
  - Wheezing [Unknown]
  - Infusion related reaction [Unknown]
  - Pyrexia [Unknown]
  - Respiratory distress [Unknown]
  - Respiratory tract infection [Unknown]
  - Device related infection [Unknown]
  - Sepsis [Unknown]
  - Pruritus [Not Recovered/Not Resolved]
